FAERS Safety Report 5329117-4 (Version None)
Quarter: 2007Q2

REPORT INFORMATION
  Report Type: 
  Country: None (occurrence: None)
  Receive Date: 20070518
  Receipt Date: 20070507
  Transmission Date: 20071010
  Serious: Yes (Death, Other)
  Sender: FDA-Public Use
  Company Number: US-PFIZER INC-2006146441

PATIENT
  Sex: Male
  Weight: 122 kg

DRUGS (7)
  1. BEXTRA [Suspect]
     Route: 048
     Dates: start: 20030701, end: 20040317
  2. VIOXX [Suspect]
     Dates: start: 20010326, end: 20040317
  3. LASIX [Concomitant]
  4. COREG [Concomitant]
  5. VALSARTAN [Concomitant]
  6. POTASSIUM CHLORIDE [Concomitant]
  7. ASPIRIN [Concomitant]

REACTIONS (1)
  - MYOCARDIAL INFARCTION [None]
